FAERS Safety Report 19260663 (Version 4)
Quarter: 2021Q2

REPORT INFORMATION
  Report Type: Report from Study
  Country: None (occurrence: DE)
  Receive Date: 20210515
  Receipt Date: 20210604
  Transmission Date: 20210717
  Serious: Yes (Other)
  Sender: FDA-Public Use
  Company Number: DE-ABBVIE-21K-062-3905127-00

PATIENT
  Age: 46 Year
  Sex: Male
  Weight: 112 kg

DRUGS (8)
  1. MAVIRET [Suspect]
     Active Substance: GLECAPREVIR\PIBRENTASVIR
     Indication: CHRONIC HEPATITIS C
     Dosage: 100 MG GLECAPREVIR/40 MG PIBRENTASVIR TABLETS, 3 TABLETS ONCE DAILY
     Route: 048
     Dates: start: 20181106, end: 20190103
  2. TENOFOVIR ALAFENAMIDE [Concomitant]
     Active Substance: TENOFOVIR ALAFENAMIDE
     Indication: HIV INFECTION
  3. BIKTARVY [Concomitant]
     Active Substance: BICTEGRAVIR SODIUM\EMTRICITABINE\TENOFOVIR ALAFENAMIDE FUMARATE
     Indication: HIV INFECTION
     Dosage: 200/25/50MG
     Route: 048
     Dates: start: 201905
  4. VITAMIN D3 HEVERT [Concomitant]
     Indication: PRODUCT USED FOR UNKNOWN INDICATION
     Dates: start: 20180613
  5. DOLUTEGRAVIR [Concomitant]
     Active Substance: DOLUTEGRAVIR
     Indication: HIV INFECTION
  6. EMTRICITABIN [Concomitant]
     Active Substance: EMTRICITABINE
     Indication: HIV INFECTION
  7. IBUPROFEN. [Concomitant]
     Active Substance: IBUPROFEN
     Indication: PRODUCT USED FOR UNKNOWN INDICATION
     Dates: start: 20200203
  8. CARBIMAZOL ARISTO [Concomitant]
     Indication: PRODUCT USED FOR UNKNOWN INDICATION
     Dates: start: 20210201

REACTIONS (13)
  - Thyroidectomy [Recovered/Resolved]
  - Vitamin D deficiency [Unknown]
  - Sensation of foreign body [Unknown]
  - Thyroid mass [Unknown]
  - Hyperthyroidism [Unknown]
  - Goitre [Unknown]
  - Dysphagia [Unknown]
  - Thyroxine decreased [Unknown]
  - Lymphadenopathy [Unknown]
  - Toxic nodular goitre [Unknown]
  - Intraoperative neurophysiologic monitoring [Recovered/Resolved]
  - Blood thyroid stimulating hormone decreased [Unknown]
  - Blood thyroid stimulating hormone increased [Unknown]

NARRATIVE: CASE EVENT DATE: 20200928
